FAERS Safety Report 5210517-8 (Version None)
Quarter: 2007Q1

REPORT INFORMATION
  Report Type: 
  Country: None (occurrence: None)
  Receive Date: 20070117
  Receipt Date: 20061219
  Transmission Date: 20070707
  Serious: Yes (Other)
  Sender: FDA-Public Use
  Company Number: PHEH2006US15635

PATIENT
  Sex: Female

DRUGS (1)
  1. LOTREL [Suspect]
     Route: 048

REACTIONS (2)
  - CONFUSIONAL STATE [None]
  - OEDEMA PERIPHERAL [None]
